FAERS Safety Report 22311215 (Version 2)
Quarter: 2023Q2

REPORT INFORMATION
  Report Type: Spontaneous
  Country: US (occurrence: US)
  Receive Date: 20230511
  Receipt Date: 20230525
  Transmission Date: 20230722
  Serious: Yes (Hospitalization, Disabling, Other)
  Sender: FDA-Public Use
  Company Number: US-MIRATI-MT2023PM03715

PATIENT

DRUGS (5)
  1. KRAZATI [Suspect]
     Active Substance: ADAGRASIB
     Indication: Lung neoplasm malignant
     Dosage: 600 MG, BID
     Route: 048
     Dates: start: 20230309, end: 20230319
  2. KRAZATI [Suspect]
     Active Substance: ADAGRASIB
     Dosage: 200 MG, QD
     Route: 048
     Dates: start: 20230420, end: 20230425
  3. KRAZATI [Suspect]
     Active Substance: ADAGRASIB
     Dosage: 200 MG, BID
     Route: 048
     Dates: start: 20230425, end: 20230430
  4. KRAZATI [Suspect]
     Active Substance: ADAGRASIB
     Dosage: 200 MG, 2 TABLETS IN THE MORNING AND 1 TABLET AT NIGHT
     Route: 048
     Dates: start: 20230430
  5. KRAZATI [Suspect]
     Active Substance: ADAGRASIB
     Dosage: 200 MG, 1 TABLET IN AM AND 2 TABLETS IN PM
     Route: 048

REACTIONS (8)
  - Acute kidney injury [Unknown]
  - Dehydration [Unknown]
  - Fatigue [Recovered/Resolved]
  - Peripheral swelling [Recovered/Resolved]
  - Nausea [Recovered/Resolved]
  - Back pain [Unknown]
  - Asthenia [Unknown]
  - Nausea [Recovering/Resolving]

NARRATIVE: CASE EVENT DATE: 20230501
